FAERS Safety Report 4268534-0 (Version None)
Quarter: 2004Q1

REPORT INFORMATION
  Report Type: 
  Country: None (occurrence: None)
  Receive Date: 20040109
  Receipt Date: 20040109
  Transmission Date: 20041129
  Serious: Yes (Death, Life-Threatening, Hospitalization)
  Sender: FDA-Public Use
  Company Number: None

PATIENT
  Age: 82 Year
  Sex: Female
  Weight: 47.6277 kg

DRUGS (18)
  1. PACLITAXEL [Suspect]
     Indication: BLADDER CANCER STAGE IV
     Dosage: SEE IMAGE
     Route: 042
     Dates: start: 20031014
  2. PACLITAXEL [Suspect]
     Indication: BLADDER CANCER STAGE IV
     Dosage: SEE IMAGE
     Route: 042
     Dates: start: 20031104
  3. PACLITAXEL [Suspect]
     Indication: BLADDER CANCER STAGE IV
     Dosage: SEE IMAGE
     Route: 042
     Dates: start: 20031125
  4. GEMCITABINE 1000MG/M2 [Suspect]
     Indication: BLADDER CANCER STAGE IV
     Dosage: SEE IMAGE
     Route: 042
     Dates: start: 20031014
  5. GEMCITABINE 1000MG/M2 [Suspect]
     Indication: BLADDER CANCER STAGE IV
     Dosage: SEE IMAGE
     Route: 042
     Dates: start: 20031021
  6. GEMCITABINE 1000MG/M2 [Suspect]
     Indication: BLADDER CANCER STAGE IV
     Dosage: SEE IMAGE
     Route: 042
     Dates: start: 20031106
  7. GEMCITABINE 1000MG/M2 [Suspect]
     Indication: BLADDER CANCER STAGE IV
     Dosage: SEE IMAGE
     Route: 042
     Dates: start: 20031111
  8. GEMCITABINE 1000MG/M2 [Suspect]
     Indication: BLADDER CANCER STAGE IV
     Dosage: SEE IMAGE
     Route: 042
     Dates: start: 20031125
  9. GEMCITABINE 1000MG/M2 [Suspect]
     Indication: BLADDER CANCER STAGE IV
     Dosage: SEE IMAGE
     Route: 042
     Dates: start: 20031202
  10. ALLEGRA [Concomitant]
  11. LISINOPRIL [Concomitant]
  12. LOZOL [Concomitant]
  13. GLUCOPHAGE [Concomitant]
  14. KCL TAB [Concomitant]
  15. GLUCOTROL [Concomitant]
  16. COUMADIN [Concomitant]
  17. TROPOL XL [Concomitant]
  18. VICODIN [Concomitant]

REACTIONS (2)
  - GANGRENE [None]
  - ILEUS [None]
